FAERS Safety Report 18738987 (Version 3)
Quarter: 2021Q2

REPORT INFORMATION
  Report Type: Report from Study
  Country: US (occurrence: US)
  Receive Date: 20210114
  Receipt Date: 20210623
  Transmission Date: 20210717
  Serious: No
  Sender: FDA-Public Use
  Company Number: NVSC2021US006880

PATIENT
  Sex: Male

DRUGS (1)
  1. ENTRESTO [Suspect]
     Active Substance: SACUBITRIL\VALSARTAN
     Indication: CARDIAC FAILURE
     Dosage: 01 DF, BID, (24/26MG)
     Route: 048
     Dates: start: 202007

REACTIONS (9)
  - Weight decreased [Unknown]
  - Fall [Unknown]
  - Fatigue [Unknown]
  - Weight increased [Unknown]
  - Amnesia [Unknown]
  - Drug ineffective [Unknown]
  - Cough [Not Recovered/Not Resolved]
  - Arthritis [Unknown]
  - Back pain [Unknown]
